FAERS Safety Report 19972629 (Version 1)
Quarter: 2021Q4

REPORT INFORMATION
  Report Type: Spontaneous
  Country: PL (occurrence: PL)
  Receive Date: 20211020
  Receipt Date: 20211020
  Transmission Date: 20220303
  Serious: Yes (Disabling, Other)
  Sender: FDA-Public Use
  Company Number: PL-LUPIN PHARMACEUTICALS INC.-2021-19975

PATIENT
  Age: 32 Year
  Sex: Male

DRUGS (1)
  1. PENICILLAMINE [Suspect]
     Active Substance: PENICILLAMINE
     Indication: Hepato-lenticular degeneration
     Dosage: UNK, (THE DOSE WAS GRADUALLY INCREASED UP TO 1500 MG/DAY)
     Route: 065

REACTIONS (3)
  - Immobile [Recovered/Resolved]
  - Systemic lupus erythematosus [Recovered/Resolved]
  - Hydrothorax [Recovered/Resolved]
